FAERS Safety Report 15148893 (Version 1)
Quarter: 2018Q3

REPORT INFORMATION
  Report Type: Spontaneous
  Country: US (occurrence: US)
  Receive Date: 20180619
  Receipt Date: 20180619
  Transmission Date: 20181010
  Serious: No
  Sender: FDA-Public Use
  Company Number: None

PATIENT
  Age: 65 Year
  Sex: Female

DRUGS (1)
  1. SUTENT [Suspect]
     Active Substance: SUNITINIB MALATE
     Indication: SOFT TISSUE SARCOMA
     Dosage: 4 CAPSULES DAILY 4 WEEKS OFF 2 WEEKS ORAL
     Route: 048
     Dates: start: 20171130

REACTIONS (2)
  - Constipation [None]
  - Oral pain [None]

NARRATIVE: CASE EVENT DATE: 20180401
